FAERS Safety Report 6115151-3 (Version None)
Quarter: 2009Q1

REPORT INFORMATION
  Report Type: 
  Country: None (occurrence: None)
  Receive Date: 20090313
  Receipt Date: 20090303
  Transmission Date: 20090719
  Serious: Yes (Hospitalization, Other)
  Sender: FDA-Public Use
  Company Number: JP-PFIZER INC-2008154921

PATIENT

DRUGS (17)
  1. VFEND [Suspect]
     Indication: ASPERGILLOSIS
     Dosage: 200 MG, 2X/DAY
     Route: 048
     Dates: start: 20070401, end: 20081208
  2. URSO 250 [Concomitant]
     Dosage: UNK
     Route: 048
     Dates: start: 20070401
  3. ALLOPURINOL [Concomitant]
     Indication: HYPERURICAEMIA
     Dosage: UNK
     Route: 048
     Dates: end: 20081208
  4. FAMOTIDINE [Concomitant]
     Indication: GASTRITIS
     Dosage: UNK
     Route: 048
  5. PURSENNID [Concomitant]
     Indication: CONSTIPATION
     Dosage: UNK
     Route: 048
  6. MUCOSOLVAN [Concomitant]
     Route: 048
  7. KALIMATE [Concomitant]
     Dosage: UNK
     Route: 048
     Dates: end: 20081208
  8. ALL OTHER THERAPEUTIC PRODUCTS [Concomitant]
     Dosage: UNK
     Route: 048
     Dates: end: 20081208
  9. DASEN [Concomitant]
     Indication: NASOPHARYNGITIS
     Dosage: UNK
     Route: 048
     Dates: end: 20081208
  10. KREMEZIN [Concomitant]
     Dosage: UNK
     Route: 048
     Dates: end: 20081208
  11. MUCODYNE [Concomitant]
     Dosage: UNK
     Route: 048
  12. SELBEX [Concomitant]
     Dosage: UNK
     Route: 048
  13. ADALAT CC [Concomitant]
     Indication: HYPERTENSION
     Dosage: UNK
     Route: 048
  14. INSULIN [Concomitant]
     Indication: DIABETES MELLITUS
     Dosage: UNK
     Route: 042
     Dates: end: 20081208
  15. LOXONIN [Concomitant]
     Dosage: UNK
     Dates: end: 20081208
  16. MICARDIS [Concomitant]
     Indication: HYPERTENSION
     Dosage: UNK
     Route: 048
  17. OLMETEC [Concomitant]
     Indication: HYPERTENSION
     Dosage: UNK
     Route: 048
     Dates: start: 20081117, end: 20081208

REACTIONS (3)
  - LIVER DISORDER [None]
  - RENAL FAILURE ACUTE [None]
  - RHABDOMYOLYSIS [None]
